FAERS Safety Report 12124396 (Version 2)
Quarter: 2016Q2

REPORT INFORMATION
  Report Type: Report from Study
  Country: US (occurrence: US)
  Receive Date: 20160229
  Receipt Date: 20160525
  Transmission Date: 20160815
  Serious: Yes (Hospitalization)
  Sender: FDA-Public Use
  Company Number: US-AMGEN-USASP2013037151

PATIENT
  Age: 76 Year
  Sex: Male

DRUGS (1)
  1. ENBREL [Suspect]
     Active Substance: ETANERCEPT
     Indication: RHEUMATOID ARTHRITIS
     Dosage: 50 MG, QWK
     Route: 065
     Dates: start: 19991201

REACTIONS (5)
  - Back injury [Unknown]
  - Neck pain [Not Recovered/Not Resolved]
  - Fall [Unknown]
  - Hypoacusis [Unknown]
  - Skeletal injury [Unknown]

NARRATIVE: CASE EVENT DATE: 201212
